FAERS Safety Report 24568592 (Version 3)
Quarter: 2024Q4

REPORT INFORMATION
  Report Type: Spontaneous
  Country: CN (occurrence: CN)
  Receive Date: 20241031
  Receipt Date: 20241126
  Transmission Date: 20250115
  Serious: Yes (Other)
  Sender: CSL BEHRING
  Company Number: CN-BEH-2024182833

PATIENT
  Age: 69 Year
  Sex: Female
  Weight: 55.5 kg

DRUGS (3)
  1. ALBURX [Suspect]
     Active Substance: ALBUMIN HUMAN
     Indication: Supplementation therapy
     Dosage: 10 G
     Route: 042
     Dates: start: 20241002, end: 20241002
  2. ALBURX [Suspect]
     Active Substance: ALBUMIN HUMAN
     Dosage: 10 G, BID
     Route: 041
     Dates: start: 20241002, end: 20241009
  3. SODIUM CHLORIDE [Concomitant]
     Active Substance: SODIUM CHLORIDE

REACTIONS (8)
  - Pruritus [Recovering/Resolving]
  - Drug eruption [Recovering/Resolving]
  - Laryngeal oedema [Recovering/Resolving]
  - Chest discomfort [Recovering/Resolving]
  - Dyspnoea [Recovering/Resolving]
  - Rash [Recovering/Resolving]
  - Eyelid oedema [Recovered/Resolved]
  - Wheezing [Recovered/Resolved]

NARRATIVE: CASE EVENT DATE: 20241008
